FAERS Safety Report 18225024 (Version 1)
Quarter: 2020Q3

REPORT INFORMATION
  Report Type: Spontaneous
  Country: FR (occurrence: FR)
  Receive Date: 20200902
  Receipt Date: 20200902
  Transmission Date: 20201103
  Serious: Yes (Other)
  Sender: FDA-Public Use
  Company Number: FR-SA-2019SA330938

PATIENT

DRUGS (4)
  1. LEXOMIL [Concomitant]
     Active Substance: BROMAZEPAM
     Dosage: UNK
     Route: 065
  2. DOLIPRANE [Concomitant]
     Active Substance: ACETAMINOPHEN
     Dosage: UNK
     Route: 065
  3. COVERSYL [PERINDOPRIL ARGININE] [Concomitant]
     Active Substance: PERINDOPRIL ARGININE
     Dosage: UNK
     Route: 065
  4. AMAREL [Suspect]
     Active Substance: GLIMEPIRIDE
     Indication: DIABETES MELLITUS
     Dosage: 1/2 TABLET IN THE MORNING AND 1/2 TABLET AT NIGHT
     Route: 065

REACTIONS (18)
  - Pruritus [Unknown]
  - Skin burning sensation [Unknown]
  - Wrong technique in product usage process [Unknown]
  - Mouth swelling [Unknown]
  - Rash macular [Unknown]
  - Feeling abnormal [Unknown]
  - Fatigue [Recovering/Resolving]
  - Eye pain [Unknown]
  - Head discomfort [Unknown]
  - Pain in extremity [Unknown]
  - Renal disorder [Unknown]
  - Renal pain [Unknown]
  - Dysphonia [Unknown]
  - Dysstasia [Recovering/Resolving]
  - Decreased appetite [Unknown]
  - Cataract [Unknown]
  - Malaise [Unknown]
  - Back disorder [Unknown]

NARRATIVE: CASE EVENT DATE: 201904
